FAERS Safety Report 7203192-4 (Version None)
Quarter: 2010Q4

REPORT INFORMATION
  Report Type: 
  Country: None (occurrence: None)
  Receive Date: 20101230
  Receipt Date: 20101221
  Transmission Date: 20110411
  Serious: Yes (Other)
  Sender: FDA-Public Use
  Company Number: CH-BIOGENIDEC-2010BI044618

PATIENT
  Age: 28 Year
  Sex: Female

DRUGS (4)
  1. TYSABRI [Suspect]
     Indication: MULTIPLE SCLEROSIS
     Route: 042
     Dates: start: 20101028
  2. TYSABRI [Suspect]
     Dates: start: 20101125
  3. DEPAKENE [Concomitant]
  4. LYRICA [Concomitant]
     Route: 048

REACTIONS (5)
  - DYSPNOEA [None]
  - LACRIMAL DISORDER [None]
  - LIP SWELLING [None]
  - RASH ERYTHEMATOUS [None]
  - TYPE I HYPERSENSITIVITY [None]
